FAERS Safety Report 7175826-4 (Version None)
Quarter: 2010Q4

REPORT INFORMATION
  Report Type: 
  Country: None (occurrence: None)
  Receive Date: 20101220
  Receipt Date: 20100406
  Transmission Date: 20110411
  Serious: No
  Sender: FDA-Public Use
  Company Number: US-AMGEN-TCS394209

PATIENT

DRUGS (2)
  1. ENBREL [Suspect]
     Indication: RHEUMATOID ARTHRITIS
     Dosage: 50 MG, QWK
     Route: 058
     Dates: start: 20100208, end: 20100228
  2. AZATHIOPRINE [Concomitant]
     Dosage: 50 MG, QD
     Route: 048

REACTIONS (7)
  - ANOSMIA [None]
  - CHEST DISCOMFORT [None]
  - COUGH [None]
  - DIZZINESS [None]
  - DYSPHONIA [None]
  - HYPOGEUSIA [None]
  - OROPHARYNGEAL PAIN [None]
